FAERS Safety Report 21042793 (Version 2)
Quarter: 2022Q3

REPORT INFORMATION
  Report Type: Report from Study
  Country: DE (occurrence: DE)
  Receive Date: 20220705
  Receipt Date: 20220712
  Transmission Date: 20221026
  Serious: Yes (Hospitalization)
  Sender: FDA-Public Use
  Company Number: DE-ABBVIE-21K-062-4078520-00

PATIENT
  Sex: Female
  Weight: 65 kg

DRUGS (10)
  1. HUMIRA [Suspect]
     Active Substance: ADALIMUMAB
     Indication: Rheumatoid arthritis
     Route: 058
     Dates: start: 20080701
  2. HUMIRA [Suspect]
     Active Substance: ADALIMUMAB
     Route: 058
  3. METOPROLOL SUCCINATE [Concomitant]
     Active Substance: METOPROLOL SUCCINATE
     Indication: Product used for unknown indication
     Route: 048
  4. FALITHROM [Concomitant]
     Active Substance: PHENPROCOUMON
     Indication: Anticoagulant therapy
     Route: 048
     Dates: start: 2019
  5. METHOTREXATE SODIUM [Concomitant]
     Active Substance: METHOTREXATE SODIUM
     Indication: Rheumatoid arthritis
     Route: 048
  6. FOLIC ACID [Concomitant]
     Active Substance: FOLIC ACID
     Indication: Rheumatoid arthritis
     Route: 048
  7. CHOLECALCIFEROL [Concomitant]
     Active Substance: CHOLECALCIFEROL
     Indication: Osteoporosis prophylaxis
     Route: 048
  8. CHOLECALCIFEROL [Concomitant]
     Active Substance: CHOLECALCIFEROL
     Indication: Vitamin D
  9. CHOLECALCIFEROL [Concomitant]
     Active Substance: CHOLECALCIFEROL
     Indication: Prophylaxis
  10. OPTOVIT [Concomitant]
     Indication: Prophylaxis
     Route: 048

REACTIONS (18)
  - Lumbar vertebral fracture [Recovering/Resolving]
  - Cataract [Recovered/Resolved]
  - Fall [Recovered/Resolved with Sequelae]
  - Lichen sclerosus [Not Recovered/Not Resolved]
  - Anal eczema [Recovered/Resolved]
  - Hepatic cyst [Not Recovered/Not Resolved]
  - Glaucoma [Not Recovered/Not Resolved]
  - Tooth disorder [Not Recovered/Not Resolved]
  - Balance disorder [Not Recovered/Not Resolved]
  - Atrial flutter [Not Recovered/Not Resolved]
  - Urinary retention [Not Recovered/Not Resolved]
  - Lichen sclerosus [Not Recovered/Not Resolved]
  - Hepatic cyst [Not Recovered/Not Resolved]
  - Osteoporosis [Not Recovered/Not Resolved]
  - Sleep disorder [Not Recovered/Not Resolved]
  - Atrial fibrillation [Not Recovered/Not Resolved]
  - Unevaluable event [Not Recovered/Not Resolved]
  - Hypertension [Not Recovered/Not Resolved]

NARRATIVE: CASE EVENT DATE: 20090101
